FAERS Safety Report 4477386-5 (Version None)
Quarter: 2004Q4

REPORT INFORMATION
  Report Type: 
  Country: None (occurrence: None)
  Receive Date: 20041013
  Receipt Date: 20040929
  Transmission Date: 20050328
  Serious: Yes (Hospitalization)
  Sender: FDA-Public Use
  Company Number: US_0409106244

PATIENT
  Age: 84 Year
  Sex: Female
  Weight: 70 kg

DRUGS (5)
  1. FORTEO [Suspect]
     Indication: OSTEOPOROSIS
     Dosage: 20 UG/1 DAY
     Dates: start: 20040728, end: 20040912
  2. TANAKAN (GINKGO BILOBA EXTRACT) [Concomitant]
  3. HIDANTAL (PHENYTOIN) [Concomitant]
  4. ARELIX (PIRETANIDE) [Concomitant]
  5. AAS (ACETYLSALICYLIC ACID) [Concomitant]

REACTIONS (2)
  - CONDITION AGGRAVATED [None]
  - CONVULSION [None]
